FAERS Safety Report 12130568 (Version 3)
Quarter: 2017Q1

REPORT INFORMATION
  Report Type: Spontaneous
  Country: HR (occurrence: HR)
  Receive Date: 20160301
  Receipt Date: 20170106
  Transmission Date: 20170428
  Serious: Yes (Hospitalization, Other)
  Sender: FDA-Public Use
  Company Number: HR-ASTRAZENECA-2016SE19215

PATIENT
  Age: 65 Year
  Sex: Male
  Weight: 105 kg

DRUGS (11)
  1. CORDARONE [Concomitant]
     Active Substance: AMIODARONE HYDROCHLORIDE
     Dosage: 200.0MG UNKNOWN
     Route: 065
  2. MEDROL [Concomitant]
     Active Substance: METHYLPREDNISOLONE
     Dosage: 16.0MG UNKNOWN
     Route: 065
  3. SPIRIVA [Concomitant]
     Active Substance: TIOTROPIUM BROMIDE MONOHYDRATE
     Dosage: 18.0UG UNKNOWN
     Route: 065
  4. SORTIS [Concomitant]
     Active Substance: ATORVASTATIN
     Indication: HYPERLIPIDAEMIA
     Dosage: 80.0MG UNKNOWN
     Route: 065
  5. BRILIQUE [Suspect]
     Active Substance: TICAGRELOR
     Indication: ACUTE MYOCARDIAL INFARCTION
     Route: 048
     Dates: start: 20151118, end: 20151210
  6. ANDOL [Suspect]
     Active Substance: ASPIRIN
     Route: 065
  7. VAL [Concomitant]
     Indication: HYPERTENSION
     Route: 065
  8. EUTHYROX [Concomitant]
     Active Substance: LEVOTHYROXINE SODIUM
     Dosage: 150.0UG UNKNOWN
     Route: 065
  9. EDEMID [Concomitant]
     Active Substance: FUROSEMIDE
     Dosage: 125.0MG UNKNOWN
     Route: 065
  10. ALDACTONE [Concomitant]
     Active Substance: SPIRONOLACTONE
     Dosage: 50.0MG UNKNOWN
     Route: 065
  11. NEBILET [Concomitant]
     Active Substance: NEBIVOLOL
     Dosage: 1.25MG UNKNOWN
     Route: 065

REACTIONS (4)
  - Platelet aggregation decreased [Unknown]
  - Anaemia [Recovering/Resolving]
  - Haematoma [Recovering/Resolving]
  - Retroperitoneal haematoma [Recovering/Resolving]

NARRATIVE: CASE EVENT DATE: 20151210
